FAERS Safety Report 8793664 (Version 3)
Quarter: 2014Q3

REPORT INFORMATION
  Report Type: Report from Study
  Country: US (occurrence: US)
  Receive Date: 20120918
  Receipt Date: 20140908
  Transmission Date: 20150326
  Serious: Yes (Death, Other)
  Sender: FDA-Public Use
  Company Number: US-ROCHE-1127858

PATIENT
  Sex: Female

DRUGS (3)
  1. VINBLASTINE [Concomitant]
     Active Substance: VINBLASTINE
  2. AVASTIN [Suspect]
     Active Substance: BEVACIZUMAB
     Indication: RENAL CANCER
     Route: 042
     Dates: start: 20091027, end: 20100105
  3. AVASTIN [Suspect]
     Active Substance: BEVACIZUMAB
     Indication: METASTATIC RENAL CELL CARCINOMA

REACTIONS (3)
  - Renal cell carcinoma [Fatal]
  - Metastases to stomach [Unknown]
  - Respiratory failure [Fatal]
